FAERS Safety Report 6149724-9 (Version None)
Quarter: 2009Q2

REPORT INFORMATION
  Report Type: 
  Country: None (occurrence: None)
  Receive Date: 20090407
  Receipt Date: 20090407
  Transmission Date: 20091009
  Serious: Yes (Life-Threatening, Hospitalization)
  Sender: FDA-Public Use
  Company Number: None

PATIENT
  Sex: Male
  Weight: 111.5849 kg

DRUGS (3)
  1. INFERGEN [Suspect]
     Indication: HEPATITIS C
     Dosage: 15MCG DAILY SQ
     Dates: start: 20080702, end: 20090122
  2. RIBAVIRIN [Concomitant]
  3. PROCRIT [Concomitant]

REACTIONS (2)
  - ANAEMIA [None]
  - AUTOANTIBODY POSITIVE [None]
